FAERS Safety Report 5446832-2 (Version None)
Quarter: 2007Q3

REPORT INFORMATION
  Report Type: 
  Country: None (occurrence: None)
  Receive Date: 20070907
  Receipt Date: 20070828
  Transmission Date: 20080115
  Serious: Yes (Other)
  Sender: FDA-Public Use
  Company Number: US-PFIZER INC-2007072653

PATIENT
  Sex: Female
  Weight: 81.6 kg

DRUGS (6)
  1. CHANTIX [Suspect]
     Indication: SMOKING CESSATION THERAPY
  2. ASPIRIN [Concomitant]
  3. VYTORIN [Concomitant]
  4. VALSARTAN [Concomitant]
  5. SPIRONOLACTONE [Concomitant]
  6. DILTIAZEM [Concomitant]

REACTIONS (5)
  - DYSPNOEA [None]
  - MEDICATION ERROR [None]
  - OVARIAN DISORDER [None]
  - POSTOPERATIVE HERNIA [None]
  - WHEEZING [None]
